FAERS Safety Report 4843477-X (Version None)
Quarter: 2005Q4

REPORT INFORMATION
  Report Type: 
  Country: None (occurrence: None)
  Receive Date: 20051101
  Receipt Date: 20050325
  Transmission Date: 20060501
  Serious: Yes (Life-Threatening)
  Sender: FDA-Public Use
  Company Number: DSA_26188_2005

PATIENT
  Age: 27 Year
  Sex: Female

DRUGS (6)
  1. ATIVAN [Suspect]
     Dosage: 1 MG BID PO
     Route: 048
  2. PROZAC [Suspect]
     Dosage: 100 MG Q DAY
  3. REMERON [Suspect]
     Dosage: 7.5 MG Q DAY PO
     Route: 048
  4. SEROQUEL [Suspect]
     Dosage: 150 MG Q DAY PO
     Route: 048
  5. WELLBUTRIN [Suspect]
     Dosage: 450 MG Q DAY PO
     Route: 048
  6. ZOFRAN [Suspect]
     Dosage: 8 MG PRN PO
     Route: 048

REACTIONS (1)
  - CONVULSION [None]
